FAERS Safety Report 17461656 (Version 1)
Quarter: 2020Q1

REPORT INFORMATION
  Report Type: Spontaneous
  Country: US (occurrence: US)
  Receive Date: 20200226
  Receipt Date: 20200226
  Transmission Date: 20200409
  Serious: Yes (Disabling)
  Sender: FDA-Public Use
  Company Number: None

PATIENT
  Age: 40 Year
  Sex: Female

DRUGS (4)
  1. FROVATRIPTAN. [Concomitant]
     Active Substance: FROVATRIPTAN
  2. AIMOVIG [Suspect]
     Active Substance: ERENUMAB-AOOE
     Indication: MIGRAINE
     Dosage: ?          OTHER FREQUENCY:1 INJECTION MONTHL;?
     Route: 058
  3. MAGNESIUM [Concomitant]
     Active Substance: MAGNESIUM
  4. AIMOVIG [Concomitant]
     Active Substance: ERENUMAB-AOOE

REACTIONS (2)
  - Irritability [None]
  - Anxiety [None]
